FAERS Safety Report 7057694-4 (Version None)
Quarter: 2010Q4

REPORT INFORMATION
  Report Type: 
  Country: None (occurrence: None)
  Receive Date: 20101022
  Receipt Date: 20101011
  Transmission Date: 20110411
  Serious: Yes (Other)
  Sender: FDA-Public Use
  Company Number: US-ELI_LILLY_AND_COMPANY-US200910005197

PATIENT
  Sex: Female
  Weight: 72.562 kg

DRUGS (15)
  1. BYETTA [Suspect]
     Indication: TYPE 2 DIABETES MELLITUS
     Dosage: 5 UG, 2/D
     Route: 065
     Dates: start: 20050713
  2. BYETTA [Suspect]
     Dosage: 10 UG, 2/D
     Route: 065
  3. BYETTA [Suspect]
     Dosage: 5 UG, 3/D
     Route: 065
     Dates: end: 20071207
  4. GLUCOPHAGE [Concomitant]
     Indication: DIABETES MELLITUS
     Dosage: 1000 MG, 2/D
     Route: 065
  5. CARDIZEM [Concomitant]
     Dosage: 120 MG, 2/D
     Route: 065
  6. DEMADEX [Concomitant]
     Indication: FLUID RETENTION
     Dosage: 20 MG, 2/D
     Route: 065
  7. PRINIVIL [Concomitant]
     Dosage: 5 MG, DAILY (1/D)
     Route: 065
  8. ZETIA [Concomitant]
     Dosage: 10 MG, DAILY (1/D)
     Route: 065
  9. CELEXA [Concomitant]
     Indication: DEPRESSION
     Dosage: UNK, UNKNOWN
     Route: 065
  10. NAPROXEN [Concomitant]
     Indication: PAIN
     Dosage: UNK, UNKNOWN
     Route: 065
  11. TYLENOL                                 /SCH/ [Concomitant]
     Indication: PAIN
     Dosage: UNK, UNKNOWN
     Route: 065
  12. LIPITOR [Concomitant]
     Indication: BLOOD CHOLESTEROL
     Dosage: UNK, UNKNOWN
     Route: 065
  13. XENICAL [Concomitant]
     Dosage: UNK, UNKNOWN
     Route: 065
  14. SYNTHROID [Concomitant]
     Dosage: 50 UG, DAILY (1/D)
     Route: 065
  15. STARLIX [Concomitant]
     Indication: TYPE 2 DIABETES MELLITUS

REACTIONS (4)
  - INCORRECT DOSE ADMINISTERED [None]
  - OVERDOSE [None]
  - PANCREATITIS ACUTE [None]
  - PANCREATITIS CHRONIC [None]
